FAERS Safety Report 16430543 (Version 3)
Quarter: 2019Q3

REPORT INFORMATION
  Report Type: Spontaneous
  Country: FR (occurrence: FR)
  Receive Date: 20190614
  Receipt Date: 20190828
  Transmission Date: 20191004
  Serious: Yes (Hospitalization, Other)
  Sender: FDA-Public Use
  Company Number: FR-BRISTOL-MYERS SQUIBB COMPANY-BMS-2019-057335

PATIENT
  Age: 66 Year
  Sex: Male
  Weight: 78 kg

DRUGS (1)
  1. OPDIVO [Suspect]
     Active Substance: NIVOLUMAB
     Indication: ANAL SQUAMOUS CELL CARCINOMA
     Dosage: NOT AVAILABLE
     Route: 065

REACTIONS (4)
  - Aneurysm ruptured [Unknown]
  - Hypertension [Unknown]
  - Intentional product use issue [Unknown]
  - Cerebral haemorrhage [Unknown]
